FAERS Safety Report 16796977 (Version 1)
Quarter: 2019Q3

REPORT INFORMATION
  Report Type: Spontaneous
  Country: CN (occurrence: CN)
  Receive Date: 20190911
  Receipt Date: 20190911
  Transmission Date: 20191005
  Serious: Yes (Hospitalization)
  Sender: FDA-Public Use
  Company Number: CN-BAXTER-2019BAX017592

PATIENT
  Age: 50 Year
  Sex: Female
  Weight: 70 kg

DRUGS (5)
  1. RECOMBINANT HUMAN GRANULOCYTE COLONY-STIMULATING FACTOR [Concomitant]
     Active Substance: GRANULOCYTE COLONY-STIMULATING FACTOR NOS
     Indication: PROPHYLAXIS
     Dosage: 2 VIALS
     Route: 058
     Dates: start: 201908, end: 201908
  2. ENDOXAN [Suspect]
     Active Substance: CYCLOPHOSPHAMIDE
     Indication: BREAST CANCER
     Dosage: CYCLOPHOSPHAMIDE 1000 MG+ 0.9% SODIUM CHLORIDE 100 ML, DAY 1
     Route: 041
     Dates: start: 20190809, end: 20190809
  3. 5% GLUCOSE  INJECTION [Suspect]
     Active Substance: DEXTROSE
     Indication: MEDICATION DILUTION
     Dosage: PIRARUBICIN HYDROCHLORIDE 50 MG+ 5% GLUCOSE SOLUTION 100 ML, DAYS 1-2 ONCE IN 14 DAYS
     Route: 041
     Dates: start: 20190809, end: 20190810
  4. PIRARUBICIN HYDROCHLORIDE [Suspect]
     Active Substance: PIRARUBICIN HYDROCHLORIDE
     Indication: BREAST CANCER
     Dosage: PIRARUBICIN HYDROCHLORIDE 50 MG+ 5% GLUCOSE SOLUTION 100 ML, DAY 1-2, ONCE IN 14 DAYS
     Route: 041
     Dates: start: 20190809, end: 20190810
  5. 0.9% SODIUM CHLORIDE INJECTION [Suspect]
     Active Substance: SODIUM CHLORIDE
     Indication: MEDICATION DILUTION
     Dosage: CYCLOPHOSPHAMIDE 1000 MG+ 0.9% SODIUM CHLORIDE 100 ML, DAY 1
     Route: 041
     Dates: start: 20190809, end: 20190809

REACTIONS (1)
  - Bone marrow failure [Recovered/Resolved]

NARRATIVE: CASE EVENT DATE: 20190822
